FAERS Safety Report 5889054-3 (Version None)
Quarter: 2008Q3

REPORT INFORMATION
  Report Type: 
  Country: None (occurrence: None)
  Receive Date: 20080919
  Receipt Date: 20080715
  Transmission Date: 20090109
  Serious: No
  Sender: FDA-Public Use
  Company Number: US-KINGPHARMUSA00001-K200800843

PATIENT

DRUGS (4)
  1. SONATA [Suspect]
     Indication: INSOMNIA
     Dosage: 10 MG, PRN
     Route: 048
     Dates: start: 20030101
  2. FUROSEMIDE [Concomitant]
     Indication: HYPERTENSION
     Dosage: UNK, QD
     Dates: start: 20030101
  3. LISINOPRIL [Concomitant]
     Indication: HYPERTENSION
     Dosage: UNK, QD
     Dates: start: 20030101
  4. NEXIUM [Concomitant]
     Dosage: UNK, UNK
     Dates: start: 20080601

REACTIONS (1)
  - DRUG INEFFECTIVE [None]
